FAERS Safety Report 18800502 (Version 1)
Quarter: 2021Q1

REPORT INFORMATION
  Report Type: Report from Study
  Country: US (occurrence: US)
  Receive Date: 20210128
  Receipt Date: 20210128
  Transmission Date: 20210419
  Serious: Yes (Other)
  Sender: FDA-Public Use
  Company Number: US-ASTRAZENECA-2021A011096

PATIENT
  Age: 570 Month
  Sex: Female
  Weight: 114.9 kg

DRUGS (2)
  1. OLAPARIB. [Suspect]
     Active Substance: OLAPARIB
     Indication: INFLAMMATORY CARCINOMA OF THE BREAST
     Route: 048
     Dates: start: 20200517, end: 20200629
  2. RADIOTHERAPY [Suspect]
     Active Substance: RADIATION THERAPY
     Indication: INFLAMMATORY CARCINOMA OF THE BREAST
     Dosage: EXTERNAL BEAM, 3D, 60 GY, NUMBER OF FRACTIONS: 30
     Route: 065
     Dates: start: 20200518

REACTIONS (1)
  - Radiation skin injury [Recovered/Resolved with Sequelae]

NARRATIVE: CASE EVENT DATE: 20200731
